FAERS Safety Report 13435664 (Version 1)
Quarter: 2017Q2

REPORT INFORMATION
  Report Type: Spontaneous
  Country: FR (occurrence: FR)
  Receive Date: 20170413
  Receipt Date: 20170413
  Transmission Date: 20170830
  Serious: Yes (Hospitalization)
  Sender: FDA-Public Use
  Company Number: FR-BAYER-2017-065560

PATIENT
  Age: 84 Year
  Sex: Male
  Weight: 77.2 kg

DRUGS (1)
  1. NEXAVAR [Suspect]
     Active Substance: SORAFENIB
     Dosage: UNK
     Dates: start: 201703, end: 20170318

REACTIONS (4)
  - Disorientation [Recovering/Resolving]
  - Vertigo [Recovering/Resolving]
  - Confusional state [Recovering/Resolving]
  - General physical health deterioration [Recovering/Resolving]

NARRATIVE: CASE EVENT DATE: 201703
